FAERS Safety Report 22590395 (Version 1)
Quarter: 2023Q2

REPORT INFORMATION
  Report Type: Spontaneous
  Country: US (occurrence: US)
  Receive Date: 20230612
  Receipt Date: 20230612
  Transmission Date: 20230721
  Serious: Yes (Life-Threatening, Hospitalization, Disabling)
  Sender: FDA-Public Use
  Company Number: US-PFIZER INC-202300169035

PATIENT
  Age: 2 Day
  Sex: Female

DRUGS (2)
  1. BICILLIN L-A [Suspect]
     Active Substance: PENICILLIN G BENZATHINE
     Dosage: UNK (2.4 MILLLION UNITS ADMINISTERED IV RIGHT FOOT)
     Route: 042
  2. PENICILLIN G POTASSIUM [Suspect]
     Active Substance: PENICILLIN G POTASSIUM
     Dosage: UNK (142,000 UNITS)
     Route: 042

REACTIONS (3)
  - Wrong product administered [Unknown]
  - Incorrect route of product administration [Unknown]
  - Limb amputation [Unknown]

NARRATIVE: CASE EVENT DATE: 20221227
